FAERS Safety Report 8207805-X (Version None)
Quarter: 2012Q1

REPORT INFORMATION
  Report Type: 
  Country: None (occurrence: None)
  Receive Date: 20120314
  Receipt Date: 20120312
  Transmission Date: 20120608
  Serious: Yes (Other)
  Sender: FDA-Public Use
  Company Number: US-PFIZER INC-2012065169

PATIENT
  Sex: Female
  Weight: 79.3 kg

DRUGS (7)
  1. DILANTIN [Suspect]
     Indication: GRAND MAL CONVULSION
     Dosage: 100 MG, 3X/DAY
     Route: 048
     Dates: start: 19930101
  2. VITAMIN B COMPLEX CAP [Concomitant]
     Dosage: 50 MG, DAILY
  3. CITRACAL [Concomitant]
     Dosage: 500 MG, 2X/DAY
  4. VITAMIN E [Concomitant]
     Dosage: 400 IU, DAILY
  5. COENZYME Q10 [Concomitant]
     Dosage: 100 MG, DAILY
  6. MULTI-VITAMINS [Concomitant]
     Dosage: UNK, DAILY
  7. ASCORBIC ACID [Concomitant]
     Dosage: 500 MG, DAILY

REACTIONS (1)
  - THYROID CANCER [None]
